FAERS Safety Report 19572148 (Version 4)
Quarter: 2022Q1

REPORT INFORMATION
  Report Type: Spontaneous
  Country: JP (occurrence: JP)
  Receive Date: 20210716
  Receipt Date: 20220118
  Transmission Date: 20220423
  Serious: Yes (Hospitalization, Other)
  Sender: FDA-Public Use
  Company Number: JP-BRISTOL-MYERS SQUIBB COMPANY-BMS-2021-060536

PATIENT
  Age: 70 Year
  Sex: Male

DRUGS (13)
  1. YERVOY [Suspect]
     Active Substance: IPILIMUMAB
     Indication: Non-small cell lung cancer recurrent
     Dosage: UNK UNK, ONE TIME DOSE
     Route: 065
     Dates: start: 20210319, end: 20210319
  2. YERVOY [Suspect]
     Active Substance: IPILIMUMAB
     Dosage: UNK, ONE TIME DOSE
     Route: 065
     Dates: start: 20210409, end: 20210409
  3. YERVOY [Suspect]
     Active Substance: IPILIMUMAB
     Dosage: UNK, ONE TIME DOSE
     Route: 065
     Dates: start: 20210430, end: 20210430
  4. YERVOY [Suspect]
     Active Substance: IPILIMUMAB
     Dosage: UNK UNK, ONE TIME DOSE
     Route: 065
     Dates: start: 20210521, end: 20210521
  5. OPDIVO [Suspect]
     Active Substance: NIVOLUMAB
     Indication: Non-small cell lung cancer recurrent
     Dosage: UNK UNK, ONE TIME DOSE
     Route: 041
     Dates: start: 20210319, end: 20210319
  6. OPDIVO [Suspect]
     Active Substance: NIVOLUMAB
     Dosage: UNK UNK, ONE TIME DOSE
     Route: 041
     Dates: start: 20210409, end: 20210409
  7. OPDIVO [Suspect]
     Active Substance: NIVOLUMAB
     Dosage: UNK, ONE TIME DOSE
     Route: 041
     Dates: start: 20210430, end: 20210430
  8. OPDIVO [Suspect]
     Active Substance: NIVOLUMAB
     Dosage: UNK, ONE TIME DOSE
     Route: 041
     Dates: start: 20210521, end: 20210521
  9. CARBOPLATIN [Suspect]
     Active Substance: CARBOPLATIN
     Indication: Non-small cell lung cancer recurrent
     Dosage: UNK, ONE TIME DOSE
     Route: 065
     Dates: start: 20210319, end: 20210319
  10. CARBOPLATIN [Suspect]
     Active Substance: CARBOPLATIN
     Dosage: UNK UNK, ONE TIME DOSE
     Route: 065
     Dates: start: 20210409, end: 20210409
  11. PEMETREXED DISODIUM [Suspect]
     Active Substance: PEMETREXED DISODIUM
     Indication: Non-small cell lung cancer recurrent
     Dosage: UNK UNK, ONE TIME DOSE
     Route: 065
     Dates: start: 20210319, end: 20210319
  12. PEMETREXED DISODIUM [Suspect]
     Active Substance: PEMETREXED DISODIUM
     Dosage: UNK UNK, ONE TIME DOSE
     Route: 065
     Dates: start: 20210409, end: 20210409
  13. COVID-19 VACCINE [Concomitant]
     Indication: Immunisation
     Dosage: UNK
     Route: 065
     Dates: start: 20210607

REACTIONS (2)
  - Acute respiratory failure [Unknown]
  - Malignant neoplasm progression [Unknown]

NARRATIVE: CASE EVENT DATE: 20210611
